FAERS Safety Report 20016758 (Version 1)
Quarter: 2021Q4

REPORT INFORMATION
  Report Type: Spontaneous
  Country: US (occurrence: None)
  Receive Date: 20211105
  Receipt Date: 20211105
  Transmission Date: 20220303
  Serious: Yes (Hospitalization)
  Sender: FDA-Public Use
  Company Number: None

PATIENT
  Age: 63 Year
  Sex: Male
  Weight: 61.2 kg

DRUGS (20)
  1. CASIRIVIMAB\IMDEVIMAB [Suspect]
     Active Substance: CASIRIVIMAB\IMDEVIMAB
     Indication: COVID-19
     Dosage: OTHER FREQUENCY : ONCE;?
     Route: 042
     Dates: start: 20211029, end: 20211029
  2. ALBUTEROL [Concomitant]
     Active Substance: ALBUTEROL
     Dates: start: 20211030, end: 20211103
  3. DEXAMETHASONE [Concomitant]
     Active Substance: DEXAMETHASONE
     Dates: start: 20211030
  4. AZITHROMYCIN [Concomitant]
     Active Substance: AZITHROMYCIN
     Dates: start: 20211030, end: 20211104
  5. CEFTRIAXONE [Concomitant]
     Active Substance: CEFTRIAXONE
     Dates: start: 2021, end: 20211103
  6. BENZONATATE [Concomitant]
     Active Substance: BENZONATATE
     Dates: start: 20211030, end: 20211103
  7. GUAIFENESIN [Concomitant]
     Active Substance: GUAIFENESIN
     Dates: start: 2021, end: 20211103
  8. PREDNISONE [Concomitant]
     Active Substance: PREDNISONE
     Dates: start: 20210830
  9. TACROLIMUS [Concomitant]
     Active Substance: TACROLIMUS
     Dates: start: 20210614
  10. MYCOPHENOLATE MOFETIL [Concomitant]
     Active Substance: MYCOPHENOLATE MOFETIL
     Dates: start: 2021, end: 20211101
  11. HEPARIN [Concomitant]
     Active Substance: HEPARIN SODIUM
     Dates: start: 20211030, end: 20211103
  12. CLONIDINE [Concomitant]
     Active Substance: CLONIDINE
     Dates: start: 20211006
  13. INSULIN NOS [Concomitant]
     Active Substance: INSULIN NOS
     Dates: start: 20210914
  14. CARVEDILOL [Concomitant]
     Active Substance: CARVEDILOL
     Dates: start: 2021, end: 20211101
  15. AMLODIPINE [Concomitant]
     Active Substance: AMLODIPINE BESYLATE
     Dates: start: 20211025
  16. COLCHICINE [Concomitant]
     Active Substance: COLCHICINE
     Dates: start: 2021, end: 20211103
  17. PANTOPRAZOLE [Concomitant]
     Active Substance: PANTOPRAZOLE
     Dates: start: 2021, end: 20211103
  18. CHOLECALCIFEROL [Concomitant]
     Active Substance: CHOLECALCIFEROL
     Dates: start: 2021, end: 20211103
  19. ALLOPURINOL [Concomitant]
     Active Substance: ALLOPURINOL
     Dates: start: 20210331
  20. CEFDINIR [Concomitant]
     Active Substance: CEFDINIR
     Dates: start: 2021

REACTIONS (4)
  - Hypoxia [None]
  - Heart rate decreased [None]
  - Lung infiltration [None]
  - Renal impairment [None]

NARRATIVE: CASE EVENT DATE: 20211030
